FAERS Safety Report 11808247 (Version 4)
Quarter: 2019Q1

REPORT INFORMATION
  Report Type: Spontaneous
  Country: AU (occurrence: AU)
  Receive Date: 20151207
  Receipt Date: 20190212
  Transmission Date: 20190417
  Serious: Yes (Death, Hospitalization, Other)
  Sender: FDA-Public Use
  Company Number: AU-ALEXION PHARMACEUTICALS INC.-A201504812

PATIENT
  Age: 38 Year
  Sex: Female

DRUGS (2)
  1. SOLIRIS [Suspect]
     Active Substance: ECULIZUMAB
     Dosage: UNK
     Dates: start: 201508
  2. SOLIRIS [Suspect]
     Active Substance: ECULIZUMAB
     Indication: PAROXYSMAL NOCTURNAL HAEMOGLOBINURIA
     Dosage: 900 MG, Q2W
     Route: 042
     Dates: start: 20150724

REACTIONS (7)
  - Pericardial effusion [Unknown]
  - Cardiac arrest [Fatal]
  - Sepsis [Fatal]
  - Aplastic anaemia [Fatal]
  - Respiratory failure [Unknown]
  - Vascular device infection [Unknown]
  - Pleural effusion [Fatal]

NARRATIVE: CASE EVENT DATE: 2015
